FAERS Safety Report 25360935 (Version 1)
Quarter: 2025Q2

REPORT INFORMATION
  Report Type: Spontaneous
  Country: SI (occurrence: SI)
  Receive Date: 20250527
  Receipt Date: 20250527
  Transmission Date: 20250717
  Serious: Yes (Other)
  Sender: BOEHRINGER INGELHEIM
  Company Number: SI-BoehringerIngelheim-2025-BI-072003

PATIENT
  Age: 25 Year
  Sex: Male
  Weight: 83 kg

DRUGS (4)
  1. JARDIANCE [Suspect]
     Active Substance: EMPAGLIFLOZIN
     Indication: Proteinuria
     Dates: start: 20250430
  2. ADALAT [Concomitant]
     Active Substance: NIFEDIPINE
     Indication: Hypertension
     Dates: start: 20250430
  3. CARDURA XL [Concomitant]
     Active Substance: DOXAZOSIN MESYLATE
     Indication: Hypertension
     Dosage: THE DOSE CAN BE THEN INCREASED TO  2 X 1 TABLET TO ACHIEVE TARGET VALUES OF 140/90
     Dates: start: 20250430
  4. ACETAMINOPHEN [Concomitant]
     Active Substance: ACETAMINOPHEN
     Indication: Headache

REACTIONS (20)
  - Haematuria [Unknown]
  - Cylindruria [Unknown]
  - Urinary lipids present [Unknown]
  - Hypertension [Recovering/Resolving]
  - Urea urine increased [Not Recovered/Not Resolved]
  - Creatinine urine increased [Not Recovered/Not Resolved]
  - Bone density increased [Not Recovered/Not Resolved]
  - Haemoglobin urine present [Not Recovered/Not Resolved]
  - Protein urine present [Not Recovered/Not Resolved]
  - Glucose urine present [Not Recovered/Not Resolved]
  - Urine sodium decreased [Unknown]
  - Urine potassium decreased [Unknown]
  - Creatinine renal clearance decreased [Unknown]
  - Polycythaemia [Unknown]
  - Blood 25-hydroxycholecalciferol decreased [Unknown]
  - Tri-iodothyronine free increased [Unknown]
  - Protein S decreased [Not Recovered/Not Resolved]
  - Hypercholesterolaemia [Unknown]
  - Hyperphosphataemia [Unknown]
  - Blood chloride increased [Unknown]

NARRATIVE: CASE EVENT DATE: 20250506
